FAERS Safety Report 5195147-9 (Version None)
Quarter: 2006Q4

REPORT INFORMATION
  Report Type: 
  Country: None (occurrence: None)
  Receive Date: 20061229
  Receipt Date: 20061215
  Transmission Date: 20070319
  Serious: Yes (Hospitalization)
  Sender: FDA-Public Use
  Company Number: NL-ROXANE LABORATORIES, INC-2006-DE-06717GD

PATIENT
  Age: 17 Year
  Sex: Female

DRUGS (2)
  1. OXAZEPAM [Suspect]
  2. CITALOPRAM HYDROBROMIDE [Suspect]

REACTIONS (7)
  - DRUG TOXICITY [None]
  - HEART RATE INCREASED [None]
  - LOSS OF CONSCIOUSNESS [None]
  - METABOLIC ACIDOSIS [None]
  - MYDRIASIS [None]
  - PSYCHOMOTOR HYPERACTIVITY [None]
  - PUPILLARY LIGHT REFLEX TESTS ABNORMAL [None]
